FAERS Safety Report 5744634-0 (Version None)
Quarter: 2008Q2

REPORT INFORMATION
  Report Type: 
  Country: None (occurrence: None)
  Receive Date: 20080516
  Receipt Date: 20080505
  Transmission Date: 20081010
  Serious: Yes (Hospitalization)
  Sender: FDA-Public Use
  Company Number: 2008S1007672

PATIENT
  Age: 30 Year
  Sex: Male

DRUGS (5)
  1. PHENYTOIN SODIUM [Suspect]
     Indication: CONVULSION
     Dosage: 400 MG AT BEDTIME ORAL; 300 MG AT BEDTIME ORAL
     Route: 048
     Dates: end: 20070801
  2. PHENYTOIN SODIUM [Suspect]
     Indication: CONVULSION
     Dosage: 400 MG AT BEDTIME ORAL; 300 MG AT BEDTIME ORAL
     Route: 048
     Dates: start: 20070801, end: 20080501
  3. PHENYTOIN SODIUM [Suspect]
     Indication: CONVULSION
     Dosage: 400 MG AT BEDTIME ORAL; 300 MG AT BEDTIME ORAL
     Route: 048
     Dates: start: 20080501
  4. LIPITOR [Concomitant]
  5. FOLIC ACID [Concomitant]

REACTIONS (2)
  - ANTIDEPRESSANT DRUG LEVEL ABOVE THERAPEUTIC [None]
  - DRUG TOXICITY [None]
